FAERS Safety Report 5297981-3 (Version None)
Quarter: 2007Q2

REPORT INFORMATION
  Report Type: 
  Country: None (occurrence: None)
  Receive Date: 20070416
  Receipt Date: 20070403
  Transmission Date: 20071010
  Serious: Yes (Other)
  Sender: FDA-Public Use
  Company Number: PHEH2007US04352

PATIENT
  Sex: Female

DRUGS (10)
  1. ZELNORM [Suspect]
     Indication: IRRITABLE BOWEL SYNDROME
     Dosage: 6 MG, BID
  2. CARDIZEM CD [Concomitant]
     Indication: CARDIAC FAILURE CONGESTIVE
     Dosage: 180 MG, UNK
  3. LASIX [Concomitant]
     Indication: CARDIAC FAILURE CONGESTIVE
     Dosage: 40 AM/20 PM
  4. BUSPIRON [Concomitant]
     Indication: ANXIETY
     Dosage: 10 MG, UNK
  5. ACTOS [Concomitant]
     Indication: DIABETES MELLITUS
     Dosage: 30 MG, QD
  6. GLYBURIDE [Concomitant]
     Indication: DIABETES MELLITUS
     Dosage: 30 MG, QD
     Dates: start: 20050101
  7. SPIRONOLACTONE [Concomitant]
     Dosage: 25 MG, BID
  8. POTASSIUM ACETATE [Concomitant]
  9. PLAVIX [Concomitant]
     Indication: ARTERIAL DISORDER
  10. MAXZIDE [Concomitant]
     Indication: HYPERTENSION
     Dates: start: 20030101

REACTIONS (8)
  - ANGINA PECTORIS [None]
  - ATHERECTOMY [None]
  - CATHETERISATION CARDIAC ABNORMAL [None]
  - COLD SWEAT [None]
  - CORONARY ARTERY OCCLUSION [None]
  - DYSPNOEA [None]
  - HEADACHE [None]
  - NAUSEA [None]
